FAERS Safety Report 21515360 (Version 1)
Quarter: 2022Q4

REPORT INFORMATION
  Report Type: Spontaneous
  Country: US (occurrence: US)
  Receive Date: 20221027
  Receipt Date: 20221027
  Transmission Date: 20230112
  Serious: Yes (Hospitalization, Other)
  Sender: FDA-Public Use
  Company Number: US-PFIZER INC-202200592192

PATIENT
  Age: 45 Year
  Sex: Male

DRUGS (3)
  1. XELJANZ [Suspect]
     Active Substance: TOFACITINIB CITRATE
     Indication: Colitis ulcerative
     Dosage: 10 MG, 2X/DAY (10MG ORALLY BID)
     Route: 048
     Dates: start: 202110
  2. STELARA [Suspect]
     Active Substance: USTEKINUMAB
     Dosage: 90 MG, CYCLIC(EVERY 8 WEEKS)
     Dates: start: 202209
  3. REMICADE [Suspect]
     Active Substance: INFLIXIMAB
     Dosage: UNK
     Dates: end: 202208

REACTIONS (4)
  - Inflammation [Not Recovered/Not Resolved]
  - Haematochezia [Recovering/Resolving]
  - Bowel movement irregularity [Recovering/Resolving]
  - Defaecation urgency [Recovering/Resolving]
